FAERS Safety Report 22132282 (Version 1)
Quarter: 2023Q1

REPORT INFORMATION
  Report Type: Spontaneous
  Country: US (occurrence: US)
  Receive Date: 20230323
  Receipt Date: 20230323
  Transmission Date: 20230417
  Serious: No
  Sender: FDA-Public Use
  Company Number: US-SA-SAC20230323000419

PATIENT
  Age: 8 Year
  Sex: Male

DRUGS (2)
  1. ELOCTATE [Suspect]
     Active Substance: EFMOROCTOCOG ALFA
     Indication: Factor VIII deficiency
     Dosage: 1106 U, TIW
     Route: 042
     Dates: start: 20230105
  2. ELOCTATE [Suspect]
     Active Substance: EFMOROCTOCOG ALFA
     Indication: Factor VIII deficiency
     Dosage: 1106 U, TIW
     Route: 042
     Dates: start: 20230105

REACTIONS (3)
  - Limb injury [Unknown]
  - Pain in extremity [Unknown]
  - Gastric infection [Unknown]

NARRATIVE: CASE EVENT DATE: 20230302
